FAERS Safety Report 4539822-5 (Version None)
Quarter: 2004Q4

REPORT INFORMATION
  Report Type: 
  Country: None (occurrence: None)
  Receive Date: 20041222
  Receipt Date: 20041207
  Transmission Date: 20050328
  Serious: Yes (Hospitalization)
  Sender: FDA-Public Use
  Company Number: USA041082398

PATIENT
  Age: 65 Year
  Sex: Male
  Weight: 65 kg

DRUGS (7)
  1. CYMBALTA [Suspect]
     Indication: DEPRESSION
     Dosage: 60 MG DAY
     Dates: start: 20041005
  2. AVANDIA [Concomitant]
  3. METOPROLOL [Concomitant]
  4. NORVASC [Concomitant]
  5. BENICAR HCT [Concomitant]
  6. LIPITOR [Concomitant]
  7. VICODIN [Concomitant]

REACTIONS (6)
  - BLOOD ALKALINE PHOSPHATASE INCREASED [None]
  - BLOOD UREA INCREASED [None]
  - CREATINE PHOSPHOKINASE DECREASED [None]
  - HYPOTENSION [None]
  - RASH [None]
  - TACHYCARDIA [None]
